APPROVED DRUG PRODUCT: TRIVORA-21
Active Ingredient: ETHINYL ESTRADIOL; LEVONORGESTREL
Strength: 0.03MG,0.04MG,0.03MG;0.05MG,0.075MG,0.125MG
Dosage Form/Route: TABLET;ORAL-21
Application: A074538 | Product #001
Applicant: DR REDDYS LABORATORIES SA
Approved: Dec 18, 1997 | RLD: No | RS: No | Type: DISCN